FAERS Safety Report 9087863 (Version 1)
Quarter: 2013Q1

REPORT INFORMATION
  Report Type: Report from Study
  Country: None (occurrence: US)
  Receive Date: 20130131
  Receipt Date: 20130131
  Transmission Date: 20140127
  Serious: Yes (Hospitalization)
  Sender: FDA-Public Use
  Company Number: US-ABBOTT-12P-163-1010251-00

PATIENT
  Age: 63 Year
  Sex: Female

DRUGS (21)
  1. HUMIRA [Suspect]
     Indication: PSORIATIC ARTHROPATHY
     Dates: start: 2005, end: 201206
  2. HUMIRA [Suspect]
     Dates: start: 201208
  3. RITALIN [Concomitant]
     Indication: PRODUCT USED FOR UNKNOWN INDICATION
  4. VESICARE [Concomitant]
     Indication: URINARY INCONTINENCE
     Dosage: 5 MG DAILY
  5. ASPIRIN (E.C.) [Concomitant]
     Indication: PRODUCT USED FOR UNKNOWN INDICATION
     Dosage: 325 MG DAILY
  6. POTASSIUM [Concomitant]
     Indication: PRODUCT USED FOR UNKNOWN INDICATION
  7. PROPRIMATE [Concomitant]
     Indication: NEURALGIA
  8. ATENOLOL [Concomitant]
     Indication: HEART RATE INCREASED
     Dosage: 25 MG DAILY
  9. CYMBALTA [Concomitant]
     Indication: PRODUCT USED FOR UNKNOWN INDICATION
     Dosage: 90 MG DAILY (3 CAPSULES)
  10. PROVIGIL [Concomitant]
     Indication: PRODUCT USED FOR UNKNOWN INDICATION
     Dosage: 400 MG DAILY
  11. FUROSEMIDE [Concomitant]
     Indication: PRODUCT USED FOR UNKNOWN INDICATION
  12. ZEGERID [Concomitant]
     Indication: GASTROOESOPHAGEAL REFLUX DISEASE
     Dosage: 40/100
  13. ZEGERID [Concomitant]
     Indication: GASTRIC DISORDER
  14. DOMPERIDONE [Concomitant]
     Indication: GASTRIC DISORDER
  15. LIPITOR [Concomitant]
     Indication: PRODUCT USED FOR UNKNOWN INDICATION
     Dosage: 10 MG DAILY
  16. CENTRUM SILVER [Concomitant]
     Indication: PRODUCT USED FOR UNKNOWN INDICATION
     Dosage: DAILY
  17. CALCIUM + VITAMIN D [Concomitant]
     Indication: PRODUCT USED FOR UNKNOWN INDICATION
     Dosage: (CALCIUM 60 MG)
  18. POLYETHYLENE GLYCOL [Concomitant]
     Indication: PRODUCT USED FOR UNKNOWN INDICATION
     Dosage: 17 GRAMS DAILY
  19. VITAMIN D [Concomitant]
     Indication: PRODUCT USED FOR UNKNOWN INDICATION
     Dosage: 1000 UNITS DAILY
  20. TRAMADOL [Concomitant]
     Indication: PRODUCT USED FOR UNKNOWN INDICATION
  21. DEPLIN [Concomitant]
     Indication: MEDICAL DIET
     Dosage: 15 MG DAILY

REACTIONS (4)
  - Knee arthroplasty [Recovered/Resolved]
  - Injection site pain [Unknown]
  - Pain [Unknown]
  - Injection site pain [Unknown]
